FAERS Safety Report 17064007 (Version 1)
Quarter: 2019Q4

REPORT INFORMATION
  Report Type: Spontaneous
  Country: FR (occurrence: FR)
  Receive Date: 20191122
  Receipt Date: 20191122
  Transmission Date: 20200122
  Serious: Yes (Death, Other)
  Sender: FDA-Public Use
  Company Number: NVSC2019FR043794

PATIENT
  Age: 86 Year
  Sex: Female

DRUGS (1)
  1. AMIODARONE [Suspect]
     Active Substance: AMIODARONE
     Indication: VENTRICULAR EXTRASYSTOLES
     Dosage: 400 MG
     Route: 065

REACTIONS (13)
  - Macroglossia [Unknown]
  - Oedema peripheral [Unknown]
  - Cardiac arrest [Fatal]
  - Mental status changes [Unknown]
  - Myxoedema coma [Unknown]
  - Hypothyroidism [Unknown]
  - Madarosis [Unknown]
  - Stupor [Unknown]
  - Myxoedema [Unknown]
  - Temperature intolerance [Unknown]
  - Bradycardia [Unknown]
  - Hypotension [Unknown]
  - Vomiting [Unknown]
